FAERS Safety Report 5629352-1 (Version None)
Quarter: 2008Q1

REPORT INFORMATION
  Report Type: 
  Country: None (occurrence: None)
  Receive Date: 20080218
  Receipt Date: 20080214
  Transmission Date: 20080703
  Serious: Yes (Other)
  Sender: FDA-Public Use
  Company Number: AT-BAYER-200813111GPV

PATIENT
  Sex: Female
  Weight: 74 kg

DRUGS (1)
  1. ULTRAVIST 370 [Suspect]
     Indication: PULMONARY EMBOLISM
     Route: 042

REACTIONS (2)
  - BLOOD PRESSURE INCREASED [None]
  - ERYTHEMA [None]
